FAERS Safety Report 10253375 (Version 1)
Quarter: 2014Q2

REPORT INFORMATION
  Report Type: Spontaneous
  Country: US (occurrence: US)
  Receive Date: 20140623
  Receipt Date: 20140623
  Transmission Date: 20141212
  Serious: No
  Sender: FDA-Public Use
  Company Number: US-SHIONOGI, INC-2014000464

PATIENT
  Age: 62 Year
  Sex: 0
  Weight: 51.25 kg

DRUGS (1)
  1. OSPHENA [Suspect]
     Indication: DYSPAREUNIA
     Dosage: 60 MG, QD
     Dates: start: 201403, end: 201405

REACTIONS (1)
  - Vaginal haemorrhage [Recovered/Resolved]
